FAERS Safety Report 8906838 (Version 1)
Quarter: 2012Q4

REPORT INFORMATION
  Report Type: 
  Country: US (occurrence: US)
  Receive Date: 20121114
  Receipt Date: 20121114
  Transmission Date: 20130627
  Serious: Yes (Hospitalization)
  Sender: FDA-Public Use
  Company Number: US-BAYER-2012-117943

PATIENT
  Age: 20 Year
  Sex: Female
  Weight: 76.19 kg

DRUGS (3)
  1. OCELLA [Suspect]
     Indication: POLYCYSTIC OVARIES
  2. METFORMIN HCL [Concomitant]
     Dosage: 750 mg, BID daily
  3. IBUPROFEN [Concomitant]

REACTIONS (1)
  - Pulmonary embolism [None]
